FAERS Safety Report 10934728 (Version 2)
Quarter: 2015Q2

REPORT INFORMATION
  Report Type: Spontaneous
  Country: US (occurrence: US)
  Receive Date: 20150320
  Receipt Date: 20150407
  Transmission Date: 20150821
  Serious: Yes (Death, Life-Threatening, Hospitalization, Congenital Anomaly, Other)
  Sender: FDA-Public Use
  Company Number: US-ELI_LILLY_AND_COMPANY-US201503006331

PATIENT
  Age: 1 Month

DRUGS (8)
  1. PROZAC [Suspect]
     Active Substance: FLUOXETINE HYDROCHLORIDE
     Indication: DEPRESSION
     Dosage: UNK, UNKNOWN
     Route: 064
     Dates: start: 20110217
  2. NUBAIN [Concomitant]
     Active Substance: NALBUPHINE HYDROCHLORIDE
     Route: 064
  3. PROVERA [Concomitant]
     Active Substance: MEDROXYPROGESTERONE ACETATE
     Route: 064
  4. PITOCIN [Concomitant]
     Active Substance: OXYTOCIN
     Route: 064
  5. FLAGYL [Concomitant]
     Active Substance: METRONIDAZOLE\METRONIDAZOLE HYDROCHLORIDE
     Route: 064
  6. AMPICILLIN [Concomitant]
     Active Substance: AMPICILLIN
     Route: 064
  7. PRENAT                             /00023601/ [Concomitant]
     Route: 064
  8. ALDOMET [Concomitant]
     Active Substance: METHYLDOPA
     Route: 064

REACTIONS (36)
  - Respiratory distress [Not Recovered/Not Resolved]
  - Failure to thrive [Not Recovered/Not Resolved]
  - Ascites [Unknown]
  - Hyperkalaemia [Recovered/Resolved]
  - Cardio-respiratory arrest [Fatal]
  - Diaphragmatic paralysis [Not Recovered/Not Resolved]
  - Vocal cord paralysis [Not Recovered/Not Resolved]
  - Hypokalaemia [Recovered/Resolved]
  - Injection site extravasation [Unknown]
  - Patent ductus arteriosus [Recovered/Resolved]
  - Bronchomalacia [Not Recovered/Not Resolved]
  - Hypoglycaemia [Recovered/Resolved]
  - Umbilical cord around neck [Recovered/Resolved]
  - Metabolic acidosis [Recovered/Resolved]
  - Chylothorax [Recovered/Resolved]
  - Tracheomalacia [Not Recovered/Not Resolved]
  - Laryngeal oedema [Not Recovered/Not Resolved]
  - Ventricular septal defect [Not Recovered/Not Resolved]
  - Interruption of aortic arch [Recovering/Resolving]
  - Renal failure [Recovered/Resolved]
  - Laryngomalacia [Not Recovered/Not Resolved]
  - Tracheitis [Recovered/Resolved]
  - Pulmonary embolism [Fatal]
  - Truncus arteriosus persistent [Recovering/Resolving]
  - Pleural effusion [Not Recovered/Not Resolved]
  - Atrial septal defect [Not Recovered/Not Resolved]
  - Cardiac failure congestive [Not Recovered/Not Resolved]
  - Hypocalcaemia [Recovered/Resolved]
  - Foetal exposure during pregnancy [Recovered/Resolved]
  - Hepatic function abnormal [Recovered/Resolved]
  - Blood lactic acid increased [Recovered/Resolved]
  - Hepatomegaly [Unknown]
  - Cholelithiasis [Unknown]
  - Pneumothorax [Not Recovered/Not Resolved]
  - Ileus [Recovered/Resolved]
  - Cephalhaematoma [Unknown]

NARRATIVE: CASE EVENT DATE: 20120101
